FAERS Safety Report 7878985-0 (Version None)
Quarter: 2011Q4

REPORT INFORMATION
  Report Type: 
  Country: None (occurrence: None)
  Receive Date: 20111101
  Receipt Date: 20111020
  Transmission Date: 20120403
  Serious: Yes (Other)
  Sender: FDA-Public Use
  Company Number: PHHY2011VE94021

PATIENT
  Sex: Female

DRUGS (6)
  1. CALCIBON D [Concomitant]
     Indication: MINERAL SUPPLEMENTATION
     Dosage: 1500 MG, UNK
     Route: 048
  2. GLUCOSAMINE [Concomitant]
     Dosage: 500 MG, UNK
     Route: 048
  3. LOVAZA [Concomitant]
     Route: 048
  4. ZOLEDRONOC ACID [Suspect]
     Indication: OSTEOPOROSIS
     Dosage: 5MG IV ROUTE ONCE A YEAR
     Route: 042
     Dates: start: 20101001
  5. BONIVA [Concomitant]
     Indication: OSTEOPOROSIS
     Dosage: 150 MG, UNK
     Route: 048
  6. PHARMATON [Concomitant]
     Indication: VITAMIN SUPPLEMENTATION
     Route: 048

REACTIONS (3)
  - ARTHROPATHY [None]
  - OSTEOPOROSIS [None]
  - CONDITION AGGRAVATED [None]
